FAERS Safety Report 21853234 (Version 1)
Quarter: 2023Q1

REPORT INFORMATION
  Report Type: Report from Study
  Country: US (occurrence: US)
  Receive Date: 20230112
  Receipt Date: 20230112
  Transmission Date: 20230418
  Serious: No
  Sender: FDA-Public Use
  Company Number: US-ABBVIE-4261701

PATIENT
  Sex: Female

DRUGS (2)
  1. HUMIRA [Suspect]
     Active Substance: ADALIMUMAB
     Indication: Rheumatoid arthritis
     Route: 058
     Dates: start: 20220224
  2. PREVNAR 20 [Suspect]
     Active Substance: STREPTOCOCCUS PNEUMONIAE TYPE 1 CAPSULAR POLYSACCHARIDE DIPHTHERIA CRM197 PROTEIN CONJUGATE ANTIGEN\
     Indication: Product used for unknown indication
     Dates: start: 20221226

REACTIONS (9)
  - Asthenia [Not Recovered/Not Resolved]
  - Rheumatoid arthritis [Unknown]
  - Muscle spasms [Unknown]
  - Therapeutic product effect decreased [Unknown]
  - Injection site pain [Unknown]
  - Gait disturbance [Not Recovered/Not Resolved]
  - Back pain [Unknown]
  - Renal pain [Unknown]
  - Ear pain [Unknown]
